FAERS Safety Report 6238304-2 (Version None)
Quarter: 2009Q2

REPORT INFORMATION
  Report Type: 
  Country: None (occurrence: None)
  Receive Date: 20090618
  Receipt Date: 20090602
  Transmission Date: 20091009
  Serious: Yes (Hospitalization, Disabling)
  Sender: FDA-Public Use
  Company Number: 09-000445

PATIENT
  Age: 2 Month
  Sex: Female

DRUGS (7)
  1. DOVONEX [Suspect]
     Indication: PITYRIASIS RUBRA PILARIS
     Dosage: TOPICAL
     Route: 061
     Dates: start: 20090302, end: 20090309
  2. OXAROL (MAXACALCITOL) [Suspect]
     Indication: PITYRIASIS RUBRA PILARIS
     Dosage: TOPICAL
     Route: 061
     Dates: start: 20090216, end: 20090311
  3. ALMETA (ALCLOMETASONE DIPROPIONATE) [Concomitant]
  4. VOALLA (DEXAMETHASONE VALERATE) [Concomitant]
  5. LOCOID [Concomitant]
  6. ANTEBATE (BETAMETHASONE BUTYRATE PROPIONATE) [Concomitant]
  7. ZADITEN /00495202/ (KETOTIFEN FUMARATE) [Concomitant]

REACTIONS (8)
  - CONDITION AGGRAVATED [None]
  - ERYTHEMA [None]
  - HYPERCALCAEMIA [None]
  - OFF LABEL USE [None]
  - PRURITUS [None]
  - RENAL DISORDER [None]
  - SKIN EXFOLIATION [None]
  - URINARY TRACT INFECTION [None]
